FAERS Safety Report 4697406-2 (Version None)
Quarter: 2005Q2

REPORT INFORMATION
  Report Type: 
  Country: None (occurrence: None)
  Receive Date: 20050621
  Receipt Date: 20050608
  Transmission Date: 20051028
  Serious: Yes (Death, Life-Threatening, Other)
  Sender: FDA-Public Use
  Company Number: USA0506100025

PATIENT
  Age: 62 Year
  Sex: Male

DRUGS (2)
  1. HUMULIN R [Suspect]
     Dosage: 22 U/2 DAY
  2. HUMULIN N [Suspect]
     Dosage: 78 U/2 DAY

REACTIONS (1)
  - MYOCARDIAL INFARCTION [None]
